FAERS Safety Report 7571644-3 (Version None)
Quarter: 2011Q2

REPORT INFORMATION
  Report Type: 
  Country: None (occurrence: None)
  Receive Date: 20110624
  Receipt Date: 20110622
  Transmission Date: 20111010
  Serious: Yes (Disabling)
  Sender: FDA-Public Use
  Company Number: US-MERCK-1106USA03112

PATIENT
  Sex: Female

DRUGS (1)
  1. FOSAMAX [Suspect]
     Route: 048

REACTIONS (5)
  - ARTHROPATHY [None]
  - JAW DISORDER [None]
  - OSTEONECROSIS [None]
  - OSTEONECROSIS OF JAW [None]
  - BONE DISORDER [None]
